FAERS Safety Report 22127175 (Version 1)
Quarter: 2023Q1

REPORT INFORMATION
  Report Type: Spontaneous
  Country: US (occurrence: US)
  Receive Date: 20230322
  Receipt Date: 20230322
  Transmission Date: 20230417
  Serious: No
  Sender: FDA-Public Use
  Company Number: US-ALLERGAN-2226530US

PATIENT
  Age: 77 Year
  Sex: Male
  Weight: 64.18 kg

DRUGS (5)
  1. ANDRODERM [Suspect]
     Active Substance: TESTOSTERONE
     Indication: Product used for unknown indication
     Dosage: UNK
     Dates: start: 20220807
  2. GLEEVEC [Concomitant]
     Active Substance: IMATINIB MESYLATE
     Indication: Leukaemia
  3. ALLOPURINOL [Concomitant]
     Active Substance: ALLOPURINOL
     Indication: Gout
  4. VITAMIN D NOS [Concomitant]
     Active Substance: VITAMIN D NOS
  5. CHOLESTENE [Concomitant]
     Indication: Blood cholesterol

REACTIONS (2)
  - Drug ineffective [Unknown]
  - Blood testosterone decreased [Unknown]

NARRATIVE: CASE EVENT DATE: 20220701
